FAERS Safety Report 10228816 (Version 2)
Quarter: 2016Q1

REPORT INFORMATION
  Report Type: Report from Study
  Country: VE (occurrence: VE)
  Receive Date: 20140610
  Receipt Date: 20160228
  Transmission Date: 20160525
  Serious: No
  Sender: FDA-Public Use
  Company Number: VE-ABBVIE-14P-178-1245170-00

PATIENT
  Sex: Female

DRUGS (2)
  1. ARCOXIA [Concomitant]
     Active Substance: ETORICOXIB
     Indication: PRODUCT USED FOR UNKNOWN INDICATION
  2. HUMIRA [Suspect]
     Active Substance: ADALIMUMAB
     Indication: RHEUMATOID ARTHRITIS
     Route: 058
     Dates: start: 20100428, end: 201401

REACTIONS (1)
  - Influenza [Recovering/Resolving]
